FAERS Safety Report 7742568-3 (Version None)
Quarter: 2011Q3

REPORT INFORMATION
  Report Type: 
  Country: None (occurrence: None)
  Receive Date: 20110912
  Receipt Date: 20110829
  Transmission Date: 20111222
  Serious: Yes (Hospitalization, Other)
  Sender: FDA-Public Use
  Company Number: US-CELGENEUS-163-21880-11083456

PATIENT
  Sex: Female
  Weight: 70.37 kg

DRUGS (15)
  1. COLACE [Concomitant]
     Route: 065
  2. LEVOTHYROXINE SODIUM [Concomitant]
     Route: 065
  3. METOPROLOL SUCCINATE [Concomitant]
     Route: 065
  4. ASPIRIN [Concomitant]
     Route: 065
  5. DULCOLAX [Concomitant]
     Route: 065
  6. SENOKOT [Concomitant]
     Route: 065
  7. TOPROL-XL [Concomitant]
     Route: 065
  8. MILK OF MAGNESIA TAB [Concomitant]
     Route: 065
  9. DANAZOL [Concomitant]
     Route: 065
  10. TRAMADOL HCL [Concomitant]
     Route: 065
  11. REVLIMID [Suspect]
     Dosage: 5 MILLIGRAM
     Route: 048
     Dates: start: 20100415
  12. LASIX [Concomitant]
     Route: 065
  13. PREDNISONE [Concomitant]
     Route: 065
  14. AMLODIPINE [Concomitant]
     Route: 065
  15. PRILOSEC [Concomitant]
     Route: 065

REACTIONS (4)
  - MUSCLE SPASMS [None]
  - CONTUSION [None]
  - LIGAMENT SPRAIN [None]
  - HAEMORRHAGE [None]
